FAERS Safety Report 20003107 (Version 1)
Quarter: 2021Q4

REPORT INFORMATION
  Report Type: Spontaneous
  Country: US (occurrence: US)
  Receive Date: 20211027
  Receipt Date: 20211027
  Transmission Date: 20220303
  Serious: Yes (Death, Hospitalization, Other)
  Sender: FDA-Public Use
  Company Number: 2021A783711

PATIENT
  Age: 25159 Day
  Sex: Female
  Weight: 46.3 kg

DRUGS (1)
  1. TAGRISSO [Suspect]
     Active Substance: OSIMERTINIB
     Indication: Non-small cell lung cancer
     Route: 048
     Dates: start: 20200908

REACTIONS (3)
  - Malignant transformation [Fatal]
  - Pneumonitis [Fatal]
  - Heart rate increased [Unknown]

NARRATIVE: CASE EVENT DATE: 20210426
